FAERS Safety Report 23144163 (Version 2)
Quarter: 2023Q4

REPORT INFORMATION
  Report Type: Spontaneous
  Country: US (occurrence: US)
  Receive Date: 20231103
  Receipt Date: 20231107
  Transmission Date: 20240110
  Serious: Yes (Other)
  Sender: FDA-Public Use
  Company Number: US-BAXTER-2023BAX034375

PATIENT
  Age: 67 Year
  Sex: Female

DRUGS (8)
  1. REGADENOSON [Suspect]
     Active Substance: REGADENOSON
     Indication: Scan myocardial perfusion
     Dosage: 0.4 MG ONCE, INFUSION
     Route: 042
  2. REGADENOSON [Suspect]
     Active Substance: REGADENOSON
     Indication: Positron emission tomogram
  3. NITROGLYCERIN [Suspect]
     Active Substance: NITROGLYCERIN
     Indication: Chest pain
     Dosage: UNK
     Route: 065
  4. NITROGLYCERIN [Suspect]
     Active Substance: NITROGLYCERIN
     Indication: Electrocardiogram ST segment elevation
     Route: 022
  5. NITROGLYCERIN [Suspect]
     Active Substance: NITROGLYCERIN
     Indication: Hypotension
  6. CARDENE [Suspect]
     Active Substance: NICARDIPINE HYDROCHLORIDE
     Indication: Electrocardiogram ST segment elevation
     Route: 022
  7. CARDENE [Suspect]
     Active Substance: NICARDIPINE HYDROCHLORIDE
     Indication: Chest pain
  8. CARDENE [Suspect]
     Active Substance: NICARDIPINE HYDROCHLORIDE
     Indication: Hypotension

REACTIONS (8)
  - Arteriospasm coronary [Unknown]
  - Chest pain [Not Recovered/Not Resolved]
  - Electrocardiogram ST segment elevation [Not Recovered/Not Resolved]
  - Ischaemia [Unknown]
  - Ejection fraction decreased [Unknown]
  - Arteriosclerosis [Unknown]
  - Hypotension [Not Recovered/Not Resolved]
  - Cardiac imaging procedure abnormal [Unknown]
